FAERS Safety Report 12048094 (Version 1)
Quarter: 2016Q1

REPORT INFORMATION
  Report Type: Spontaneous
  Country: US (occurrence: None)
  Receive Date: 20160208
  Receipt Date: 20160208
  Transmission Date: 20160526
  Serious: Yes (Hospitalization, Disabling, Other)
  Sender: FDA-Public Use
  Company Number: None

PATIENT
  Age: 79 Year
  Sex: Female
  Weight: 68.04 kg

DRUGS (4)
  1. VITAMIN D3 [Concomitant]
     Active Substance: CHOLECALCIFEROL
  2. BACLOFEN. [Suspect]
     Active Substance: BACLOFEN
  3. CALCIUM [Concomitant]
     Active Substance: CALCIUM
  4. CENTRUM SENIOR [Concomitant]

REACTIONS (5)
  - Fall [None]
  - Personality disorder [None]
  - Refusal of treatment by patient [None]
  - Mental status changes [None]
  - Dysphonia [None]

NARRATIVE: CASE EVENT DATE: 20160109
